FAERS Safety Report 4820985-9 (Version None)
Quarter: 2005Q4

REPORT INFORMATION
  Report Type: 
  Country: None (occurrence: None)
  Receive Date: 20051104
  Receipt Date: 20051025
  Transmission Date: 20060501
  Serious: Yes (Death)
  Sender: FDA-Public Use
  Company Number: BE-AVENTIS-200519422GDDC

PATIENT
  Age: 61 Year
  Sex: Female

DRUGS (5)
  1. TAXOTERE [Suspect]
     Route: 042
     Dates: start: 20051018, end: 20051018
  2. DEPAKENE [Concomitant]
  3. ZANTAC [Concomitant]
  4. MEDROL [Concomitant]
  5. ERYTHROPOIETINE [Concomitant]
     Indication: ANAEMIA

REACTIONS (7)
  - BLOOD PRESSURE SYSTOLIC DECREASED [None]
  - CARDIAC ARREST [None]
  - CHEST PAIN [None]
  - ELECTROCARDIOGRAM ST SEGMENT DEPRESSION [None]
  - PALLOR [None]
  - SHOCK [None]
  - SINUS TACHYCARDIA [None]
